FAERS Safety Report 21592285 (Version 1)
Quarter: 2022Q4

REPORT INFORMATION
  Report Type: Spontaneous
  Country: US (occurrence: US)
  Receive Date: 20221114
  Receipt Date: 20221114
  Transmission Date: 20230113
  Serious: Yes (Other)
  Sender: FDA-Public Use
  Company Number: US-C B Fleet Co Inc-202210-US-003391

PATIENT
  Sex: Male

DRUGS (1)
  1. GINGER [Suspect]
     Active Substance: GINGER
     Indication: Product used for unknown indication
     Dosage: UNKNOWN DOSE
     Route: 048

REACTIONS (1)
  - Seizure [Unknown]
